FAERS Safety Report 9192771 (Version 1)
Quarter: 2013Q1

REPORT INFORMATION
  Report Type: Spontaneous
  Country: DE (occurrence: DE)
  Receive Date: 20130327
  Receipt Date: 20130327
  Transmission Date: 20140127
  Serious: Yes (Hospitalization)
  Sender: FDA-Public Use
  Company Number: DE-PFIZER INC-2013094320

PATIENT
  Sex: Male
  Weight: 87 kg

DRUGS (11)
  1. XALATAN [Suspect]
     Indication: GLAUCOMA
     Dosage: UNK
     Dates: start: 20130305, end: 20130310
  2. XALATAN [Suspect]
     Dosage: UNK
     Dates: start: 20130312
  3. LISINOPRIL [Concomitant]
     Dosage: 20 MG, UNK
  4. ATENOLOL [Concomitant]
     Dosage: 50 MG, UNK
  5. AMLODIPINE [Concomitant]
     Dosage: 5 MG, UNK
  6. ASS 100 [Concomitant]
  7. PANTOPRAZOL [Concomitant]
     Dosage: 20 MG, UNK
  8. SIMVASTATIN [Concomitant]
     Dosage: 20 MG, UNK
  9. ALLOPURINOL [Concomitant]
     Dosage: 300 MG, UNK
  10. GLIMEPIRIDE [Concomitant]
     Dosage: 1.5 MG, UNK
  11. THYRONAJOD [Concomitant]

REACTIONS (5)
  - Arrhythmia [Not Recovered/Not Resolved]
  - Eye pain [Not Recovered/Not Resolved]
  - Asthenia [Not Recovered/Not Resolved]
  - Dizziness [Not Recovered/Not Resolved]
  - Blood pressure increased [Not Recovered/Not Resolved]
